FAERS Safety Report 7321053-7 (Version None)
Quarter: 2011Q1

REPORT INFORMATION
  Report Type: 
  Country: None (occurrence: None)
  Receive Date: 20110228
  Receipt Date: 20110222
  Transmission Date: 20110831
  Serious: Yes (Death, Other)
  Sender: FDA-Public Use
  Company Number: US-ROCHE-758913

PATIENT
  Sex: Male

DRUGS (3)
  1. IRINOTECAN [Concomitant]
  2. AVASTIN [Suspect]
     Dosage: 5 DOSES TILL 28 JANUARY 2010.
     Route: 042
     Dates: start: 20091203
  3. XELODA [Suspect]
     Route: 048

REACTIONS (3)
  - TREATMENT FAILURE [None]
  - COLORECTAL CANCER METASTATIC [None]
  - DISEASE PROGRESSION [None]
